FAERS Safety Report 8264282-0 (Version None)
Quarter: 2012Q2

REPORT INFORMATION
  Report Type: 
  Country: None (occurrence: None)
  Receive Date: 20120406
  Receipt Date: 20120402
  Transmission Date: 20120825
  Serious: No
  Sender: FDA-Public Use
  Company Number: US-PFIZER INC-2012056936

PATIENT
  Sex: Female
  Weight: 50 kg

DRUGS (5)
  1. HUMALOG [Concomitant]
     Dosage: (Q DAY)
  2. GARDASIL [Concomitant]
     Dosage: (1 DOSE)
     Dates: start: 20110523, end: 20110523
  3. DEPO-PROVERA [Suspect]
     Indication: CONTRACEPTION
     Dosage: 150 MG,
     Route: 030
     Dates: start: 20110523, end: 20110523
  4. LANTUS [Concomitant]
     Dosage: 10 IU, 1X/DAY
  5. PROMETHAZINE [Concomitant]
     Dosage: UNK, AS NEEDED

REACTIONS (2)
  - INAPPROPRIATE SCHEDULE OF DRUG ADMINISTRATION [None]
  - UNINTENDED PREGNANCY [None]
